FAERS Safety Report 20705075 (Version 10)
Quarter: 2025Q2

REPORT INFORMATION
  Report Type: Spontaneous
  Country: ES (occurrence: ES)
  Receive Date: 20220413
  Receipt Date: 20250526
  Transmission Date: 20250716
  Serious: Yes (Life-Threatening, Hospitalization)
  Sender: ORGANON
  Company Number: None

PATIENT
  Age: 21 Year
  Sex: Male
  Weight: 63 kg

DRUGS (7)
  1. DESLORATADINE [Suspect]
     Active Substance: DESLORATADINE
     Indication: Suicide attempt
     Dosage: 40 MILLIGRAM, QD (8 TABLETS)
     Route: 048
     Dates: start: 20220325, end: 20220325
  2. ACETAMINOPHEN [Suspect]
     Active Substance: ACETAMINOPHEN
     Indication: Overdose
     Dosage: 40 MILLIGRAM, QD (40 GRAMS (40 TABLETS))
     Route: 048
     Dates: start: 20220325, end: 20220325
  3. PREDNISONE [Suspect]
     Active Substance: PREDNISONE
     Indication: Suicide attempt
     Route: 048
     Dates: start: 20220325, end: 20220325
  4. OMEPRAZOLE [Suspect]
     Active Substance: OMEPRAZOLE
     Indication: Suicide attempt
     Dosage: 280 MILLIGRAM, QD (14 CAPSULES)
     Route: 048
     Dates: start: 20220325, end: 20220325
  5. IBUPROFEN [Suspect]
     Active Substance: IBUPROFEN
     Indication: Accidental overdose
     Route: 048
     Dates: start: 20220325, end: 20220325
  6. DIAZEPAM [Suspect]
     Active Substance: DIAZEPAM
     Indication: Suicide attempt
     Dosage: 150 MILLIGRAM, QD (30 TABLETS)
     Route: 048
     Dates: start: 20220325, end: 20220325
  7. DOXYLAMINE [Suspect]
     Active Substance: DOXYLAMINE
     Indication: Suicide attempt
     Dosage: 350 MILLIGRAM, QD (14 TABLETS)
     Route: 048
     Dates: start: 20220325, end: 20220325

REACTIONS (3)
  - Suicide attempt [Recovering/Resolving]
  - Depressed level of consciousness [Recovered/Resolved]
  - Intentional overdose [Unknown]

NARRATIVE: CASE EVENT DATE: 20220325
